FAERS Safety Report 20343212 (Version 1)
Quarter: 2022Q1

REPORT INFORMATION
  Report Type: Spontaneous
  Country: US (occurrence: US)
  Receive Date: 20220117
  Receipt Date: 20220117
  Transmission Date: 20220424
  Serious: No
  Sender: FDA-Public Use
  Company Number: US-BEH-2022140699

PATIENT
  Age: 57 Year
  Sex: Female

DRUGS (2)
  1. HIZENTRA [Suspect]
     Active Substance: HUMAN IMMUNOGLOBULIN G
     Indication: Hypogammaglobulinaemia
     Dosage: 10 GRAM, QW TOTAL
     Route: 058
     Dates: start: 20190724
  2. HIZENTRA [Suspect]
     Active Substance: HUMAN IMMUNOGLOBULIN G
     Dosage: UNK
     Route: 058
     Dates: start: 20211226, end: 20211226

REACTIONS (6)
  - Feeling abnormal [Unknown]
  - Infusion site swelling [Unknown]
  - Infusion site pain [Unknown]
  - Injection site pruritus [Unknown]
  - Fatigue [Unknown]
  - Headache [Unknown]

NARRATIVE: CASE EVENT DATE: 20211226
